FAERS Safety Report 5960269-9 (Version None)
Quarter: 2008Q4

REPORT INFORMATION
  Report Type: 
  Country: None (occurrence: None)
  Receive Date: 20081118
  Receipt Date: 20081118
  Transmission Date: 20090506
  Serious: Yes (Other)
  Sender: FDA-Public Use
  Company Number: None

PATIENT
  Age: 6 Year
  Sex: Female
  Weight: 23.1334 kg

DRUGS (1)
  1. SINGULAIR [Suspect]
     Indication: MULTIPLE ALLERGIES
     Dosage: CHEW 1 TABLET DAILY PO
     Route: 048
     Dates: start: 20060615, end: 20080329

REACTIONS (9)
  - ABNORMAL BEHAVIOUR [None]
  - AFFECT LABILITY [None]
  - AGGRESSION [None]
  - CRYING [None]
  - FEAR [None]
  - NIGHTMARE [None]
  - PHYSICAL ABUSE [None]
  - POOR QUALITY SLEEP [None]
  - SOMNOLENCE [None]
